FAERS Safety Report 5719603-7 (Version None)
Quarter: 2008Q2

REPORT INFORMATION
  Report Type: 
  Country: None (occurrence: None)
  Receive Date: 20080423
  Receipt Date: 20070529
  Transmission Date: 20081010
  Serious: Yes (Death)
  Sender: FDA-Public Use
  Company Number: 238980

PATIENT
  Age: 68 Year
  Sex: Male

DRUGS (5)
  1. AVASTIN [Suspect]
     Indication: NON-SMALL CELL LUNG CANCER
     Dosage: 10 MG/KG, Q3W
  2. GEMZAR [Concomitant]
  3. CISPLATIN [Concomitant]
  4. DARBEPOETIN ALFA (DARBEPOETIN ALFA) [Concomitant]
  5. OPRELVEKIN (OPRELVEKIN) [Concomitant]

REACTIONS (2)
  - HYPERTENSIVE CRISIS [None]
  - HYPERTENSIVE ENCEPHALOPATHY [None]
